FAERS Safety Report 9543800 (Version 2)
Quarter: 2013Q3

REPORT INFORMATION
  Report Type: Spontaneous
  Country: US (occurrence: US)
  Receive Date: 20130923
  Receipt Date: 20130923
  Transmission Date: 20140515
  Serious: Yes (Hospitalization)
  Sender: FDA-Public Use
  Company Number: US-ABBVIE-13P-163-1136536-00

PATIENT
  Age: 12 Year
  Sex: Female

DRUGS (1)
  1. HUMIRA [Suspect]
     Indication: JUVENILE IDIOPATHIC ARTHRITIS

REACTIONS (1)
  - Glomerulonephritis [Not Recovered/Not Resolved]
